FAERS Safety Report 5872781-1 (Version None)
Quarter: 2008Q3

REPORT INFORMATION
  Report Type: 
  Country: None (occurrence: None)
  Receive Date: 20080903
  Receipt Date: 20080825
  Transmission Date: 20090109
  Serious: Yes (Other)
  Sender: FDA-Public Use
  Company Number: 237697J08USA

PATIENT
  Age: 58 Year
  Sex: Female
  Weight: 99.7913 kg

DRUGS (6)
  1. REBIF [Suspect]
     Indication: MULTIPLE SCLEROSIS
     Dosage: 44 MCG, 3 IN 1 WEEKS, SUBCUTANEOUS
     Route: 058
     Dates: start: 20061026
  2. VERAPAMIL [Concomitant]
  3. PREMARIN [Concomitant]
  4. KLONOPIN [Concomitant]
  5. ADVAIR (SERETIDE) [Concomitant]
  6. ZOLOFT [Concomitant]

REACTIONS (6)
  - FEELING HOT [None]
  - HEADACHE [None]
  - HYPERSENSITIVITY [None]
  - MACULAR HOLE [None]
  - TREATMENT FAILURE [None]
  - VISUAL IMPAIRMENT [None]
